FAERS Safety Report 6886332-6 (Version None)
Quarter: 2010Q3

REPORT INFORMATION
  Report Type: 
  Country: None (occurrence: None)
  Receive Date: 20100729
  Receipt Date: 20080313
  Transmission Date: 20110219
  Serious: No
  Sender: FDA-Public Use
  Company Number: US-PFIZER INC-2008023427

PATIENT

DRUGS (2)
  1. CELEBREX [Suspect]
     Indication: EAR PAIN
  2. CELEBREX [Suspect]
     Indication: DIZZINESS

REACTIONS (1)
  - WEIGHT INCREASED [None]
